FAERS Safety Report 5552030-4 (Version None)
Quarter: 2007Q4

REPORT INFORMATION
  Report Type: 
  Country: None (occurrence: None)
  Receive Date: 20071212
  Receipt Date: 20071204
  Transmission Date: 20080405
  Serious: Yes (Other)
  Sender: FDA-Public Use
  Company Number: US-PFIZER INC-2007102574

PATIENT
  Age: 52 Year
  Sex: Female
  Weight: 51 kg

DRUGS (6)
  1. ZOLOFT [Suspect]
  2. CHANTIX [Suspect]
     Indication: EX-SMOKER
     Dates: start: 20071101, end: 20071119
  3. ACIPHEX [Concomitant]
  4. PREMARIN [Concomitant]
  5. CRESTOR [Concomitant]
  6. KLONOPIN [Concomitant]

REACTIONS (7)
  - CRYING [None]
  - DEPRESSION [None]
  - DYSPEPSIA [None]
  - NAUSEA [None]
  - OBSESSIVE-COMPULSIVE DISORDER [None]
  - SUICIDAL IDEATION [None]
  - VOMITING [None]
